FAERS Safety Report 9788890 (Version 2)
Quarter: 2014Q1

REPORT INFORMATION
  Report Type: Report from Study
  Country: US (occurrence: US)
  Receive Date: 20131230
  Receipt Date: 20140317
  Transmission Date: 20141002
  Serious: Yes (Hospitalization)
  Sender: FDA-Public Use
  Company Number: US-GLAXOSMITHKLINE-B0955399B

PATIENT
  Age: 69 Year
  Sex: Female
  Weight: 86.7 kg

DRUGS (12)
  1. FLUTICASONE FUROATE + VILANTEROL TRIFENATATE [Suspect]
     Indication: CHRONIC OBSTRUCTIVE PULMONARY DISEASE
  2. XIFAXAN [Concomitant]
     Indication: HEPATIC ENCEPHALOPATHY
     Dosage: 550MG TWICE PER DAY
     Route: 048
     Dates: start: 20120619
  3. LUNESTA [Concomitant]
     Indication: INSOMNIA
     Route: 048
     Dates: start: 20120619
  4. LOTRISONE [Concomitant]
     Indication: ANTIFUNGAL PROPHYLAXIS
     Dosage: 1PCT TWICE PER DAY
     Route: 061
     Dates: start: 20120619
  5. NYSTATIN [Concomitant]
     Indication: CANDIDA INFECTION
     Route: 048
  6. ASPIRIN [Concomitant]
     Indication: CARDIOVASCULAR EVENT PROPHYLAXIS
     Dosage: 81MG PER DAY
     Route: 048
  7. METFORMIN [Concomitant]
     Indication: DIABETES MELLITUS
     Dosage: 500MG TWICE PER DAY
     Route: 048
     Dates: start: 20120619
  8. FORTEO [Concomitant]
     Indication: OSTEOPOROSIS
     Route: 058
     Dates: start: 20120619
  9. LASIX [Concomitant]
     Indication: HYPERTENSION
     Route: 048
     Dates: start: 20120619
  10. LISINOPRIL [Concomitant]
     Indication: HYPERTENSION
     Dosage: 2.5MG PER DAY
     Route: 048
     Dates: start: 20120619
  11. SIMVASTATIN [Concomitant]
     Indication: BLOOD CHOLESTEROL INCREASED
     Route: 048
     Dates: start: 20120619
  12. VESICARE [Concomitant]
     Indication: HYPERTONIC BLADDER
     Dosage: 5MG PER DAY
     Route: 048
     Dates: start: 20120619

REACTIONS (1)
  - Renal failure acute [Recovered/Resolved]
